FAERS Safety Report 11947085 (Version 2)
Quarter: 2016Q1

REPORT INFORMATION
  Report Type: Report from Study
  Country: US (occurrence: US)
  Receive Date: 20160125
  Receipt Date: 20160129
  Transmission Date: 20160526
  Serious: No
  Sender: FDA-Public Use
  Company Number: US-AMGEN-USASL2015131229

PATIENT
  Age: 45 Year
  Sex: Male
  Weight: 108.3 kg

DRUGS (4)
  1. LIPITOR [Concomitant]
     Active Substance: ATORVASTATIN CALCIUM
     Dosage: 40 UNK, QD
     Route: 048
     Dates: start: 20150501
  2. REPATHA [Suspect]
     Active Substance: EVOLOCUMAB
     Indication: HYPERLIPIDAEMIA
  3. TRICOR                             /00090101/ [Concomitant]
     Active Substance: ADENOSINE
     Dosage: 134 UNK, QD
     Route: 048
     Dates: start: 20140313
  4. REPATHA [Suspect]
     Active Substance: EVOLOCUMAB
     Indication: DYSLIPIDAEMIA
     Dosage: 140 MG, Q2WK
     Route: 065
     Dates: start: 20151020, end: 201511

REACTIONS (9)
  - Low density lipoprotein increased [Unknown]
  - Blood urea increased [Unknown]
  - Glomerular filtration rate increased [Unknown]
  - Blood triglycerides increased [Unknown]
  - Back pain [Recovering/Resolving]
  - Blood cholesterol increased [Unknown]
  - High density lipoprotein decreased [Unknown]
  - Blood glucose increased [Unknown]
  - Drug hypersensitivity [Unknown]

NARRATIVE: CASE EVENT DATE: 2015
